FAERS Safety Report 7470952-4 (Version None)
Quarter: 2011Q2

REPORT INFORMATION
  Report Type: 
  Country: None (occurrence: None)
  Receive Date: 20110502
  Receipt Date: 20110427
  Transmission Date: 20111010
  Serious: Yes (Life-Threatening, Hospitalization)
  Sender: FDA-Public Use
  Company Number: 2011SP018792

PATIENT
  Age: 59 Year
  Sex: Male
  Weight: 90 kg

DRUGS (1)
  1. DEXAMETHASONE [Suspect]
     Indication: NAUSEA
     Dosage: 8 MG, ONCE, IV
     Route: 042
     Dates: start: 20110112, end: 20110112

REACTIONS (2)
  - EFFUSION [None]
  - ANASTOMOTIC COMPLICATION [None]
